FAERS Safety Report 10267605 (Version 1)
Quarter: 2014Q2

REPORT INFORMATION
  Report Type: Spontaneous
  Country: US (occurrence: US)
  Receive Date: 20140630
  Receipt Date: 20140630
  Transmission Date: 20141212
  Serious: No
  Sender: FDA-Public Use
  Company Number: US-PFIZER INC-2014180363

PATIENT
  Sex: Female

DRUGS (2)
  1. LIPITOR [Suspect]
     Dosage: 40 MG, DAILY
  2. LIPITOR [Suspect]
     Dosage: 10 MG, DAILY

REACTIONS (2)
  - Pain [Unknown]
  - Sleep disorder [Recovered/Resolved]
